FAERS Safety Report 7377721-4 (Version None)
Quarter: 2011Q1

REPORT INFORMATION
  Report Type: 
  Country: None (occurrence: None)
  Receive Date: 20110328
  Receipt Date: 20101018
  Transmission Date: 20110831
  Serious: Yes (Other)
  Sender: FDA-Public Use
  Company Number: US-BAYER-201017021NA

PATIENT
  Sex: Female
  Weight: 117.91 kg

DRUGS (6)
  1. YAZ [Suspect]
     Indication: ACNE
  2. YAZ [Suspect]
     Indication: PREMENSTRUAL SYNDROME
  3. YAZ [Suspect]
     Indication: CONTRACEPTION
     Dosage: UNK UNK, QD
     Route: 048
     Dates: start: 20080201, end: 20090801
  4. ALLEGRA [Concomitant]
  5. ZOLOFT [Concomitant]
  6. EXCEDRIN (MIGRAINE) [Concomitant]
     Indication: MIGRAINE

REACTIONS (2)
  - CHOLELITHIASIS [None]
  - MENTAL DISORDER [None]
